FAERS Safety Report 25569983 (Version 7)
Quarter: 2025Q4

REPORT INFORMATION
  Report Type: Spontaneous
  Country: JP (occurrence: JP)
  Receive Date: 20250717
  Receipt Date: 20251015
  Transmission Date: 20260117
  Serious: Yes (Hospitalization, Other)
  Sender: AMGEN
  Company Number: JP-KYOWAKIRIN-2025KK013383

PATIENT
  Age: 87 Year
  Sex: Male

DRUGS (3)
  1. DARBEPOETIN ALFA [Suspect]
     Active Substance: DARBEPOETIN ALFA
     Indication: Nephrogenic anaemia
     Dosage: 240 UG, 1X/WEEK
     Route: 065
     Dates: start: 20250512, end: 20250630
  2. DARBEPOETIN ALFA [Suspect]
     Active Substance: DARBEPOETIN ALFA
     Dosage: 60 UG, 1X/WEEK
     Route: 065
     Dates: start: 20130603
  3. DARBEPOETIN ALFA [Suspect]
     Active Substance: DARBEPOETIN ALFA
     Dosage: UNK,THEREAFTER WITH THE DOSE ADJUSTED AT 60 TO 90 MICROGRAMS/1 TO 2 WEEKS
     Route: 065

REACTIONS (2)
  - Aplasia pure red cell [Unknown]
  - Myelodysplastic syndrome [Unknown]

NARRATIVE: CASE EVENT DATE: 20250630
